FAERS Safety Report 22113019 (Version 2)
Quarter: 2024Q3

REPORT INFORMATION
  Report Type: Spontaneous
  Country: CA (occurrence: CA)
  Receive Date: 20230320
  Receipt Date: 20240729
  Transmission Date: 20241016
  Serious: Yes (Death, Other)
  Sender: BRISTOL MYERS SQUIBB
  Company Number: CA-BRISTOL-MYERS SQUIBB COMPANY-2023-039403

PATIENT
  Age: 44 Year
  Sex: Female

DRUGS (199)
  1. ORENCIA [Suspect]
     Active Substance: ABATACEPT
     Indication: Rheumatoid arthritis
     Route: 058
  2. ORENCIA [Suspect]
     Active Substance: ABATACEPT
     Route: 042
  3. ORENCIA [Suspect]
     Active Substance: ABATACEPT
     Route: 017
  4. ORENCIA [Suspect]
     Active Substance: ABATACEPT
  5. ORENCIA [Suspect]
     Active Substance: ABATACEPT
     Route: 041
  6. ACETAMINOPHEN [Concomitant]
     Active Substance: ACETAMINOPHEN
     Indication: Rheumatoid arthritis
  7. ACTEMRA [Concomitant]
     Active Substance: TOCILIZUMAB
     Indication: Rheumatoid arthritis
     Route: 042
  8. ACTEMRA [Concomitant]
     Active Substance: TOCILIZUMAB
     Route: 042
  9. ACTEMRA [Concomitant]
     Active Substance: TOCILIZUMAB
     Route: 042
  10. ACTEMRA [Concomitant]
     Active Substance: TOCILIZUMAB
     Route: 042
  11. ACTEMRA [Concomitant]
     Active Substance: TOCILIZUMAB
     Route: 042
  12. ACTEMRA [Concomitant]
     Active Substance: TOCILIZUMAB
     Route: 042
  13. ACTEMRA [Concomitant]
     Active Substance: TOCILIZUMAB
     Route: 058
  14. ADALIMUMAB [Concomitant]
     Active Substance: ADALIMUMAB\ISOPROPYL ALCOHOL
     Indication: Psoriatic arthropathy
     Route: 048
  15. ADALIMUMAB [Concomitant]
     Active Substance: ADALIMUMAB\ISOPROPYL ALCOHOL
     Route: 058
  16. ADALIMUMAB [Concomitant]
     Active Substance: ADALIMUMAB\ISOPROPYL ALCOHOL
     Route: 048
  17. ALENDRONIC ACID [Concomitant]
     Active Substance: ALENDRONIC ACID
     Indication: Rheumatoid arthritis
  18. ALENDRONIC ACID [Concomitant]
     Active Substance: ALENDRONIC ACID
     Route: 048
  19. ALENDRONIC ACID [Concomitant]
     Active Substance: ALENDRONIC ACID
  20. ALENDRONIC ACID [Concomitant]
     Active Substance: ALENDRONIC ACID
     Route: 048
  21. PREDNISONE [Concomitant]
     Active Substance: PREDNISONE
     Indication: Rheumatoid arthritis
  22. PREDNISONE [Concomitant]
     Active Substance: PREDNISONE
  23. PREDNISONE [Concomitant]
     Active Substance: PREDNISONE
     Route: 048
  24. APREMILAST [Concomitant]
     Active Substance: APREMILAST
     Indication: Product used for unknown indication
  25. APREMILAST [Concomitant]
     Active Substance: APREMILAST
     Route: 042
  26. APREPITANT [Concomitant]
     Active Substance: APREPITANT
     Indication: Product used for unknown indication
     Route: 042
  27. ARAVA [Concomitant]
     Active Substance: LEFLUNOMIDE
     Indication: Rheumatoid arthritis
     Route: 048
  28. CALCIUM CARBONATE [Concomitant]
     Active Substance: CALCIUM CARBONATE
     Indication: Product used for unknown indication
  29. CALCIUM GLUBIONATE [Concomitant]
     Active Substance: CALCIUM GLUBIONATE
     Indication: Product used for unknown indication
  30. CELEBREX [Concomitant]
     Active Substance: CELECOXIB
     Indication: Product used for unknown indication
     Route: 048
  31. CELECOXIB [Concomitant]
     Active Substance: CELECOXIB
     Indication: Product used for unknown indication
  32. CERTOLIZUMAB PEGOL [Concomitant]
     Active Substance: CERTOLIZUMAB PEGOL
     Indication: Product used for unknown indication
  33. CETIRIZINE [Concomitant]
     Active Substance: CETIRIZINE HYDROCHLORIDE
     Indication: Rheumatoid arthritis
  34. CETIRIZINE HYDROCHLORIDE [Concomitant]
     Active Substance: CETIRIZINE HYDROCHLORIDE
     Indication: Rheumatoid arthritis
     Route: 048
  35. CETIRIZINE HYDROCHLORIDE [Concomitant]
     Active Substance: CETIRIZINE HYDROCHLORIDE
     Route: 048
  36. CETIRIZINE HYDROCHLORIDE [Concomitant]
     Active Substance: CETIRIZINE HYDROCHLORIDE
  37. CETIRIZINE HYDROCHLORIDE [Concomitant]
     Active Substance: CETIRIZINE HYDROCHLORIDE
  38. CETIRIZINE HYDROCHLORIDE [Concomitant]
     Active Substance: CETIRIZINE HYDROCHLORIDE
     Route: 048
  39. CETIRIZINE HYDROCHLORIDE [Concomitant]
     Active Substance: CETIRIZINE HYDROCHLORIDE
     Route: 048
  40. CETIRIZINE HYDROCHLORIDE [Concomitant]
     Active Substance: CETIRIZINE HYDROCHLORIDE
     Route: 048
  41. CHLORAPREP [Concomitant]
     Active Substance: CHLORHEXIDINE GLUCONATE\ISOPROPYL ALCOHOL
     Indication: Product used for unknown indication
     Route: 061
  42. CHLORHEXIDINE [Concomitant]
     Active Substance: CHLORHEXIDINE
     Indication: Product used for unknown indication
     Route: 061
  43. CHLORHEXIDINE [Concomitant]
     Active Substance: CHLORHEXIDINE
     Route: 048
  44. CHLORHEXIDINE [Concomitant]
     Active Substance: CHLORHEXIDINE
     Route: 002
  45. CHLORHEXIDINE GLUCONATE [Concomitant]
     Active Substance: CHLORHEXIDINE GLUCONATE
     Indication: Product used for unknown indication
     Route: 048
  46. CHLORHEXIDINE GLUCONATE [Concomitant]
     Active Substance: CHLORHEXIDINE GLUCONATE
     Route: 061
  47. CHLORHEXIDINE GLUCONATE [Concomitant]
     Active Substance: CHLORHEXIDINE GLUCONATE
     Route: 002
  48. CIMZIA [Concomitant]
     Active Substance: CERTOLIZUMAB PEGOL
     Indication: Rheumatoid arthritis
     Route: 058
  49. CIMZIA [Concomitant]
     Active Substance: CERTOLIZUMAB PEGOL
     Route: 058
  50. CIMZIA [Concomitant]
     Active Substance: CERTOLIZUMAB PEGOL
     Dosage: SOLUTION FOR INJECTION INPRE-FILLED SYRINGE
     Route: 058
  51. CIMZIA [Concomitant]
     Active Substance: CERTOLIZUMAB PEGOL
     Route: 058
  52. CORTISONE ACETATE [Concomitant]
     Active Substance: CORTISONE ACETATE
     Indication: Rheumatoid arthritis
     Route: 048
  53. CORTISONE ACETATE [Concomitant]
     Active Substance: CORTISONE ACETATE
     Dosage: ALSO REPORTED AS ORAL
     Route: 061
  54. COSENTYX [Concomitant]
     Active Substance: SECUKINUMAB
     Indication: Rheumatoid arthritis
     Route: 005
  55. DESOXIMETASONE [Concomitant]
     Active Substance: DESOXIMETASONE
     Indication: Rheumatoid arthritis
     Dosage: SUBCUTANEOUS
     Route: 061
  56. DESOXIMETASONE [Concomitant]
     Active Substance: DESOXIMETASONE
  57. DESOXIMETASONE [Concomitant]
     Active Substance: DESOXIMETASONE
     Dosage: INTRAVENOUS (NOT OTHER WISE SPECIFIED)
     Route: 048
  58. DESOXIMETASONE [Concomitant]
     Active Substance: DESOXIMETASONE
     Dosage: SUBCUTANEOUS
     Route: 003
  59. DESOXIMETASONE [Concomitant]
     Active Substance: DESOXIMETASONE
     Route: 058
  60. DESOXIMETASONE [Concomitant]
     Active Substance: DESOXIMETASONE
     Route: 003
  61. DESOXIMETASONE [Concomitant]
     Active Substance: DESOXIMETASONE
     Route: 058
  62. DESOXIMETASONE [Concomitant]
     Active Substance: DESOXIMETASONE
     Route: 042
  63. DICLOFENAC DIETHYLAMINE [Concomitant]
     Active Substance: DICLOFENAC DIETHYLAMINE
     Indication: Product used for unknown indication
  64. DICLOFENAC POTASSIUM [Concomitant]
     Active Substance: DICLOFENAC POTASSIUM
     Indication: Product used for unknown indication
     Route: 048
  65. DICLOFENAC SODIUM [Concomitant]
     Active Substance: DICLOFENAC\DICLOFENAC SODIUM
     Indication: Product used for unknown indication
     Dosage: SUBCUTANEOUS, ORAL, OPTHALMIC
  66. DICLOFENAC SODIUM [Concomitant]
     Active Substance: DICLOFENAC\DICLOFENAC SODIUM
  67. DICLOFENAC SODIUM [Concomitant]
     Active Substance: DICLOFENAC\DICLOFENAC SODIUM
     Route: 047
  68. DICLOFENAC SODIUM [Concomitant]
     Active Substance: DICLOFENAC\DICLOFENAC SODIUM
     Route: 058
  69. DICLOFENAC SODIUM [Concomitant]
     Active Substance: DICLOFENAC\DICLOFENAC SODIUM
     Route: 048
  70. DOXYCYCLINE [Concomitant]
     Active Substance: DOXYCYCLINE\DOXYCYCLINE HYCLATE
     Indication: Product used for unknown indication
  71. ENBREL [Concomitant]
     Active Substance: BENZYL ALCOHOL\ETANERCEPT
     Indication: Rheumatoid arthritis
     Route: 058
  72. ENBREL [Concomitant]
     Active Substance: BENZYL ALCOHOL\ETANERCEPT
     Indication: Psoriatic arthropathy
     Route: 058
  73. ENBREL [Concomitant]
     Active Substance: BENZYL ALCOHOL\ETANERCEPT
     Route: 058
  74. ERELZI [Concomitant]
     Active Substance: ETANERCEPT-SZZS
     Indication: Rheumatoid arthritis
     Route: 058
  75. FLUMETHASONE PIVALATE [Concomitant]
     Active Substance: FLUMETHASONE PIVALATE
     Indication: Rheumatoid arthritis
     Route: 058
  76. FOLIC ACID [Concomitant]
     Active Substance: FOLIC ACID
     Indication: Rheumatoid arthritis
     Route: 058
  77. FOLIC ACID [Concomitant]
     Active Substance: FOLIC ACID
     Route: 048
  78. FOLIC ACID [Concomitant]
     Active Substance: FOLIC ACID
     Dosage: 3 MG, 500 MG, 25 MG, 0.5 MG, 1 MG, 15 MG.
     Route: 048
  79. FOLIC ACID [Concomitant]
     Active Substance: FOLIC ACID
     Route: 048
  80. FOLIC ACID [Concomitant]
     Active Substance: FOLIC ACID
     Route: 048
  81. FOLIC ACID [Concomitant]
     Active Substance: FOLIC ACID
     Route: 048
  82. FOLIC ACID [Concomitant]
     Active Substance: FOLIC ACID
  83. FOLIC ACID [Concomitant]
     Active Substance: FOLIC ACID
  84. FOSAMAX [Concomitant]
     Active Substance: ALENDRONATE SODIUM
     Indication: Rheumatoid arthritis
     Route: 048
  85. GOLIMUMAB [Concomitant]
     Active Substance: GOLIMUMAB
     Indication: Rheumatoid arthritis
     Dosage: SUBCUTANEOUS
     Route: 048
  86. GOLIMUMAB [Concomitant]
     Active Substance: GOLIMUMAB
     Route: 058
  87. HUMIRA [Concomitant]
     Active Substance: ADALIMUMAB
     Indication: Rheumatoid arthritis
     Route: 058
  88. HUMIRA [Concomitant]
     Active Substance: ADALIMUMAB
     Indication: Psoriatic arthropathy
     Route: 058
  89. HUMIRA [Concomitant]
     Active Substance: ADALIMUMAB
     Route: 058
  90. HYDROCORTISONE BUTYRATE [Concomitant]
     Active Substance: HYDROCORTISONE BUTYRATE
     Indication: Rheumatoid arthritis
     Route: 058
  91. HYDROXYCHLOROQUINE [Concomitant]
     Active Substance: HYDROXYCHLOROQUINE
     Indication: Rheumatoid arthritis
     Route: 048
  92. HYDROXYCHLOROQUINE SULFATE [Concomitant]
     Active Substance: HYDROXYCHLOROQUINE SULFATE
     Indication: Systemic lupus erythematosus
     Route: 048
  93. HYDROXYCHLOROQUINE SULFATE [Concomitant]
     Active Substance: HYDROXYCHLOROQUINE SULFATE
     Indication: Rheumatoid arthritis
     Route: 048
  94. HYDROXYCHLOROQUINE SULFATE [Concomitant]
     Active Substance: HYDROXYCHLOROQUINE SULFATE
     Route: 048
  95. HYDROXYCHLOROQUINE SULFATE [Concomitant]
     Active Substance: HYDROXYCHLOROQUINE SULFATE
     Route: 058
  96. HYDROXYCHLOROQUINE SULFATE [Concomitant]
     Active Substance: HYDROXYCHLOROQUINE SULFATE
  97. INFLIXIMAB [Concomitant]
     Active Substance: INFLIXIMAB
     Indication: Rheumatoid arthritis
  98. INFLIXIMAB [Concomitant]
     Active Substance: INFLIXIMAB
     Route: 042
  99. ISOPROPYL ALCOHOL [Concomitant]
     Active Substance: ISOPROPYL ALCOHOL
     Indication: Product used for unknown indication
     Dosage: LIQUID
     Route: 061
  100. LEFLUNOMIDE [Concomitant]
     Active Substance: LEFLUNOMIDE
     Indication: Rheumatoid arthritis
     Route: 048
  101. LYRICA [Concomitant]
     Active Substance: PREGABALIN
     Indication: Product used for unknown indication
  102. METHOTREXATE [Concomitant]
     Active Substance: METHOTREXATE
     Indication: Rheumatoid arthritis
     Route: 048
  103. METHOTREXATE [Concomitant]
     Active Substance: METHOTREXATE
  104. METHOTREXATE [Concomitant]
     Active Substance: METHOTREXATE
     Route: 058
  105. METHOTREXATE [Concomitant]
     Active Substance: METHOTREXATE
     Route: 048
  106. METHOTREXATE [Concomitant]
     Active Substance: METHOTREXATE
  107. METHOTREXATE [Concomitant]
     Active Substance: METHOTREXATE
     Route: 048
  108. METHOTREXATE [Concomitant]
     Active Substance: METHOTREXATE
     Route: 058
  109. METHOTREXATE [Concomitant]
     Active Substance: METHOTREXATE
     Route: 013
  110. METHOTREXATE [Concomitant]
     Active Substance: METHOTREXATE
     Route: 048
  111. METHOTREXATE [Concomitant]
     Active Substance: METHOTREXATE
     Route: 048
  112. METHOTREXATE [Concomitant]
     Active Substance: METHOTREXATE
     Route: 058
  113. METHOTREXATE [Concomitant]
     Active Substance: METHOTREXATE
     Route: 048
  114. METHOTREXATE [Concomitant]
     Active Substance: METHOTREXATE
     Route: 013
  115. METHOTREXATE [Concomitant]
     Active Substance: METHOTREXATE
     Route: 048
  116. METHOTREXATE [Concomitant]
     Active Substance: METHOTREXATE
     Route: 048
  117. METHOTREXATE [Concomitant]
     Active Substance: METHOTREXATE
     Route: 058
  118. METHOTREXATE [Concomitant]
     Active Substance: METHOTREXATE
     Route: 048
  119. METHOTREXATE [Concomitant]
     Active Substance: METHOTREXATE
     Route: 048
  120. METHOTREXATE [Concomitant]
     Active Substance: METHOTREXATE
     Route: 058
  121. METHOTREXATE [Concomitant]
     Active Substance: METHOTREXATE
     Route: 013
  122. METHOTREXATE [Concomitant]
     Active Substance: METHOTREXATE
     Route: 048
  123. METHOTREXATE [Concomitant]
     Active Substance: METHOTREXATE
  124. METHOTREXATE [Concomitant]
     Active Substance: METHOTREXATE
     Route: 058
  125. MYCOPHENOLATE MOFETIL [Concomitant]
     Active Substance: MYCOPHENOLATE MOFETIL
     Indication: Product used for unknown indication
  126. NAPROXEN SODIUM [Concomitant]
     Active Substance: NAPROXEN\NAPROXEN SODIUM
     Indication: Rheumatoid arthritis
  127. NEOMYCIN [Concomitant]
     Active Substance: NEOMYCIN
     Indication: Product used for unknown indication
  128. OTEZLA [Concomitant]
     Active Substance: APREMILAST
     Indication: Product used for unknown indication
     Route: 048
  129. OXYCODONE [Concomitant]
     Active Substance: OXYCODONE
     Indication: Product used for unknown indication
  130. OXYCODONE [Concomitant]
     Active Substance: OXYCODONE
     Indication: Product used for unknown indication
  131. OXYCODONE HYDROCHLORIDE [Concomitant]
     Active Substance: OXYCODONE HYDROCHLORIDE
     Indication: Product used for unknown indication
  132. OXYCODONE HYDROCHLORIDE [Concomitant]
     Active Substance: OXYCODONE HYDROCHLORIDE
     Indication: Product used for unknown indication
  133. OXYCODONE TEREPHTHALATE [Concomitant]
     Active Substance: OXYCODONE TEREPHTHALATE
     Indication: Product used for unknown indication
     Route: 016
  134. PANTOPRAZOLE [Concomitant]
     Active Substance: PANTOPRAZOLE
     Indication: Product used for unknown indication
  135. PHTHALYLSULFATHIAZOLE [Concomitant]
     Active Substance: PHTHALYLSULFATHIAZOLE
     Indication: Rheumatoid arthritis
     Dosage: 2000 MG, 400 MG, 500 MG.
     Route: 048
  136. PHTHALYLSULFATHIAZOLE [Concomitant]
     Active Substance: PHTHALYLSULFATHIAZOLE
     Route: 016
  137. PHTHALYLSULFATHIAZOLE [Concomitant]
     Active Substance: PHTHALYLSULFATHIAZOLE
     Dosage: 2000 MG, 400 MG, 500 MG.
     Route: 048
  138. PHTHALYLSULFATHIAZOLE [Concomitant]
     Active Substance: PHTHALYLSULFATHIAZOLE
  139. PHTHALYLSULFATHIAZOLE [Concomitant]
     Active Substance: PHTHALYLSULFATHIAZOLE
     Route: 042
  140. PHTHALYLSULFATHIAZOLE [Concomitant]
     Active Substance: PHTHALYLSULFATHIAZOLE
     Route: 048
  141. PREDNISONE [Concomitant]
     Active Substance: PREDNISONE
     Indication: Rheumatoid arthritis
     Dosage: 5 MG, 7.5 MG, 1 MG, 40 MG.?ORAL, IV
     Route: 048
  142. PREDNISONE [Concomitant]
     Active Substance: PREDNISONE
     Indication: Psoriatic arthropathy
     Dosage: 5 MG, 7.5 MG, 1 MG, 40 MG.?ORAL, IV
  143. PREDNISONE [Concomitant]
     Active Substance: PREDNISONE
     Dosage: 5 MG, 7.5 MG, 1 MG, 40 MG.?ORAL, IV
  144. PREDNISONE [Concomitant]
     Active Substance: PREDNISONE
     Dosage: 5 MG, 7.5 MG, 1 MG, 40 MG.?ORAL, IV
     Route: 048
  145. PREDNISONE [Concomitant]
     Active Substance: PREDNISONE
     Dosage: 5 MG, 7.5 MG, 1 MG, 40 MG.?ORAL, IV
     Route: 048
  146. PREDNISONE [Concomitant]
     Active Substance: PREDNISONE
     Route: 042
  147. PREGABALIN [Concomitant]
     Active Substance: PREGABALIN
     Indication: Product used for unknown indication
  148. PSEUDOEPHEDRINE [Concomitant]
     Active Substance: PSEUDOEPHEDRINE
     Indication: Product used for unknown indication
  149. PSEUDOEPHEDRINE HYDROCHLORIDE [Concomitant]
     Active Substance: PSEUDOEPHEDRINE HYDROCHLORIDE
     Indication: Rheumatoid arthritis
     Dosage: 25 MG
  150. PSEUDOEPHEDRINE HYDROCHLORIDE [Concomitant]
     Active Substance: PSEUDOEPHEDRINE HYDROCHLORIDE
  151. CETIRIZINE HYDROCHLORIDE\PSEUDOEPHEDRINE HYDROCHLORIDE [Concomitant]
     Active Substance: CETIRIZINE HYDROCHLORIDE\PSEUDOEPHEDRINE HYDROCHLORIDE
     Indication: Rheumatoid arthritis
     Dosage: 25 MG
     Route: 048
  152. CETIRIZINE HYDROCHLORIDE\PSEUDOEPHEDRINE HYDROCHLORIDE [Concomitant]
     Active Substance: CETIRIZINE HYDROCHLORIDE\PSEUDOEPHEDRINE HYDROCHLORIDE
  153. REMICADE [Concomitant]
     Active Substance: INFLIXIMAB
     Indication: Rheumatoid arthritis
     Dosage: 25 MG
     Route: 042
  154. RITUXIMAB [Concomitant]
     Active Substance: RITUXIMAB
     Indication: Rheumatoid arthritis
     Route: 042
  155. RITUXIMAB [Concomitant]
     Active Substance: RITUXIMAB
     Route: 041
  156. RITUXIMAB [Concomitant]
     Active Substance: RITUXIMAB
     Route: 058
  157. SULFASALAZINE [Concomitant]
     Active Substance: SULFASALAZINE
     Indication: Rheumatoid arthritis
     Dosage: 500 MG, 1000MG.
     Route: 042
  158. SULFASALAZINE [Concomitant]
     Active Substance: SULFASALAZINE
     Route: 048
  159. SULFASALAZINE [Concomitant]
     Active Substance: SULFASALAZINE
     Route: 048
  160. SULFASALAZINE [Concomitant]
     Active Substance: SULFASALAZINE
  161. SULFASALAZINE [Concomitant]
     Active Substance: SULFASALAZINE
     Route: 048
  162. SIMPONI [Concomitant]
     Active Substance: GOLIMUMAB
     Indication: Rheumatoid arthritis
     Dosage: SOLUTION FOR INJECTION INPRE-FILLED SYRINGE
     Route: 058
  163. SIMPONI [Concomitant]
     Active Substance: GOLIMUMAB
     Indication: Psoriatic arthropathy
     Dosage: SOLUTION FOR INJECTION INPRE-FILLED SYRINGE
     Route: 042
  164. SIMPONI [Concomitant]
     Active Substance: GOLIMUMAB
     Dosage: SOLUTION FOR INJECTION INPRE-FILLED SYRINGE
     Route: 058
  165. SIMPONI [Concomitant]
     Active Substance: GOLIMUMAB
     Dosage: SOLUTION FOR INJECTION INPRE-FILLED SYRINGE
     Route: 052
  166. STELARA [Concomitant]
     Active Substance: USTEKINUMAB
     Indication: Product used for unknown indication
     Route: 058
  167. STELARA [Concomitant]
     Active Substance: USTEKINUMAB
     Route: 042
  168. SULFAMETHOXAZOLE [Concomitant]
     Active Substance: SULFAMETHOXAZOLE
     Indication: Product used for unknown indication
  169. SULFASALAZINE [Concomitant]
     Active Substance: SULFASALAZINE
     Indication: Rheumatoid arthritis
     Route: 048
  170. SULFASALAZINE [Concomitant]
     Active Substance: SULFASALAZINE
     Route: 048
  171. SULFASALAZINE [Concomitant]
     Active Substance: SULFASALAZINE
     Route: 048
  172. SULFASALAZINE [Concomitant]
     Active Substance: SULFASALAZINE
     Route: 048
  173. SULFASALAZINE [Concomitant]
     Active Substance: SULFASALAZINE
     Route: 048
  174. SULFASALAZINE [Concomitant]
     Active Substance: SULFASALAZINE
     Route: 058
  175. SULFASALAZINE [Concomitant]
     Active Substance: SULFASALAZINE
     Route: 048
  176. SULFASALAZINE [Concomitant]
     Active Substance: SULFASALAZINE
     Route: 048
  177. SULFASALAZINE [Concomitant]
     Active Substance: SULFASALAZINE
     Route: 048
  178. SULFASALAZINE [Concomitant]
     Active Substance: SULFASALAZINE
  179. SULFASALAZINE [Concomitant]
     Active Substance: SULFASALAZINE
     Route: 048
  180. TOCILIZUMAB [Concomitant]
     Active Substance: TOCILIZUMAB
     Indication: Rheumatoid arthritis
     Route: 058
  181. TOFACITINIB CITRATE [Concomitant]
     Active Substance: TOFACITINIB CITRATE
     Indication: Rheumatoid arthritis
     Route: 048
  182. TOFACITINIB CITRATE [Concomitant]
     Active Substance: TOFACITINIB CITRATE
     Indication: Psoriatic arthropathy
  183. TRAMADOL HYDROCHLORIDE [Concomitant]
     Active Substance: TRAMADOL HYDROCHLORIDE
     Indication: Product used for unknown indication
     Route: 058
  184. USTEKINUMAB [Concomitant]
     Active Substance: USTEKINUMAB
     Indication: Psoriatic arthropathy
  185. VITAMIN D3 [Concomitant]
     Active Substance: CHOLECALCIFEROL
     Indication: Product used for unknown indication
  186. DIETARY SUPPLEMENT [Concomitant]
     Active Substance: DIETARY SUPPLEMENT
     Indication: Product used for unknown indication
     Route: 016
  187. XELJANZ [Concomitant]
     Active Substance: TOFACITINIB CITRATE
     Indication: Rheumatoid arthritis
     Dosage: 10 MG.
     Route: 048
  188. XELJANZ [Concomitant]
     Active Substance: TOFACITINIB CITRATE
     Route: 048
  189. XELJANZ [Concomitant]
     Active Substance: TOFACITINIB CITRATE
  190. CHOLECALCIFEROL [Concomitant]
     Active Substance: CHOLECALCIFEROL
     Indication: Product used for unknown indication
  191. CALCIUM CARBONATE\CALCIUM LACTATE GLUCONATE [Concomitant]
     Active Substance: CALCIUM CARBONATE\CALCIUM LACTATE GLUCONATE
     Indication: Product used for unknown indication
  192. CORTISONE (HYDROCORTISONE) [Concomitant]
     Active Substance: HYDROCORTISONE
     Indication: Rheumatoid arthritis
     Route: 058
  193. CORTISONE (HYDROCORTISONE) [Concomitant]
     Active Substance: HYDROCORTISONE
     Route: 003
  194. CORTISONE (HYDROCORTISONE) [Concomitant]
     Active Substance: HYDROCORTISONE
     Route: 048
  195. HYDROCORTISONE [Concomitant]
     Active Substance: HYDROCORTISONE\HYDROCORTISONE ACETATE
     Indication: Rheumatoid arthritis
     Route: 003
  196. HYDROCORTISONE [Concomitant]
     Active Substance: HYDROCORTISONE\HYDROCORTISONE ACETATE
     Route: 058
  197. HYDROCORTISONE [Concomitant]
     Active Substance: HYDROCORTISONE\HYDROCORTISONE ACETATE
     Route: 058
  198. HYDROCORTISONE [Concomitant]
     Active Substance: HYDROCORTISONE\HYDROCORTISONE ACETATE
     Route: 061
  199. CETIRIZINE HYDROCHLORIDE [Concomitant]
     Active Substance: CETIRIZINE HYDROCHLORIDE
     Indication: Rheumatoid arthritis
     Route: 048

REACTIONS (1)
  - Death [Fatal]
